FAERS Safety Report 14551705 (Version 1)
Quarter: 2018Q1

REPORT INFORMATION
  Report Type: Other
  Country: ES (occurrence: ES)
  Receive Date: 20180220
  Receipt Date: 20180220
  Transmission Date: 20180509
  Serious: Yes (Other)
  Sender: FDA-Public Use
  Company Number: ES-MACLEODS PHARMACEUTICALS US LTD-MAC2018009912

PATIENT

DRUGS (5)
  1. CLONAZEPAM. [Suspect]
     Active Substance: CLONAZEPAM
     Indication: SCHIZOPHRENIA
     Dosage: 2 MG, QD, TABLET (DOSE DECREASED)
     Route: 048
     Dates: start: 2015
  2. RISPERIDONE. [Suspect]
     Active Substance: RISPERIDONE
     Indication: SCHIZOPHRENIA
     Dosage: 3 MG, QD, TABLET ( DOSE DECREASED)
     Route: 048
  3. ARIPIPRAZOLE 5MG TABLET [Suspect]
     Active Substance: ARIPIPRAZOLE
     Indication: SCHIZOPHRENIA
     Dosage: 5 MG, QD
     Route: 048
     Dates: start: 2015
  4. RISPERIDONE. [Suspect]
     Active Substance: RISPERIDONE
     Dosage: 3 MG, QD
     Route: 065
     Dates: start: 2015
  5. CLONAZEPAM. [Suspect]
     Active Substance: CLONAZEPAM
     Dosage: 2 MG, QD,
     Route: 065

REACTIONS (4)
  - Ataxia [Unknown]
  - Sedation [Unknown]
  - Disturbance in attention [Unknown]
  - Dysarthria [Unknown]

NARRATIVE: CASE EVENT DATE: 2015
